FAERS Safety Report 7367146-X (Version None)
Quarter: 2011Q1

REPORT INFORMATION
  Report Type: 
  Country: None (occurrence: None)
  Receive Date: 20110310
  Receipt Date: 20110228
  Transmission Date: 20110831
  Serious: Yes (Other)
  Sender: FDA-Public Use
  Company Number: CIP11000535

PATIENT
  Age: 58 Year
  Sex: Male

DRUGS (6)
  1. CALCIUM (CALCIUM) [Concomitant]
  2. VITAMIN D /00318501/  (COLECALCIFEROL) [Concomitant]
  3. TENOFOVIR DISOPROXIL FUMARATE [Concomitant]
  4. ATAZANAVIR (ATAZANAVIR) [Concomitant]
  5. LAMIVUDINE [Concomitant]
  6. RISEDRONATE (RISEDRONATE SODIUM) TABLET, 35MG [Suspect]
     Indication: OSTEOPOROSIS
     Dosage: 35 MG ONCE WEEKLY, ORAL
     Route: 048
     Dates: start: 20070101

REACTIONS (5)
  - PATHOLOGICAL FRACTURE [None]
  - URINE CALCIUM INCREASED [None]
  - FEMUR FRACTURE [None]
  - DRUG INEFFECTIVE [None]
  - STRESS FRACTURE [None]
